FAERS Safety Report 21822961 (Version 1)
Quarter: 2023Q1

REPORT INFORMATION
  Report Type: Spontaneous
  Country: US (occurrence: US)
  Receive Date: 20230105
  Receipt Date: 20230105
  Transmission Date: 20230418
  Serious: No
  Sender: FDA-Public Use
  Company Number: US-AMNEAL PHARMACEUTICALS-2022-AMRX-02903

PATIENT
  Age: 43 Year
  Sex: Female
  Weight: 54.9 kg

DRUGS (5)
  1. ACTIVELLA [Suspect]
     Active Substance: ESTRADIOL\NORETHINDRONE ACETATE
     Indication: Uterine leiomyoma
     Dosage: 300MG, 1 /DAY
     Route: 048
     Dates: start: 20191001
  2. ELAGOLIX [Suspect]
     Active Substance: ELAGOLIX
     Indication: Uterine leiomyoma
     Dosage: 1 CAPSULES, 1 /DAY
     Route: 048
     Dates: start: 20191001
  3. DOCUSATE SOD [Concomitant]
     Indication: Constipation
     Dosage: 100 MG, 1 AS REQUIRED
     Route: 065
     Dates: start: 20180816
  4. FERROUS SULFATE [Concomitant]
     Active Substance: FERROUS SULFATE
     Indication: Anaemia
     Dosage: 325 MG, 1 /DAY
     Route: 048
     Dates: start: 20180816
  5. VITAMIN D3 [Concomitant]
     Active Substance: CHOLECALCIFEROL
     Indication: Vitamin D deficiency
     Dosage: 1000 IU, 1 /DAY
     Route: 048
     Dates: start: 20191017

REACTIONS (1)
  - Alopecia [Not Recovered/Not Resolved]

NARRATIVE: CASE EVENT DATE: 20200630
